FAERS Safety Report 23761349 (Version 1)
Quarter: 2024Q2

REPORT INFORMATION
  Report Type: Spontaneous
  Country: US (occurrence: None)
  Receive Date: 20240419
  Receipt Date: 20240419
  Transmission Date: 20240716
  Serious: Yes (Hospitalization)
  Sender: FDA-Public Use
  Company Number: 2024A089317

PATIENT
  Sex: Female

DRUGS (2)
  1. TRUQAP [Suspect]
     Active Substance: CAPIVASERTIB
     Indication: Breast cancer
     Route: 048
  2. CLARITIN [Concomitant]
     Active Substance: LORATADINE

REACTIONS (3)
  - Rash [Recovering/Resolving]
  - Nausea [Unknown]
  - Vomiting [Unknown]
